FAERS Safety Report 5719479-8 (Version None)
Quarter: 2008Q2

REPORT INFORMATION
  Report Type: 
  Country: None (occurrence: None)
  Receive Date: 20080428
  Receipt Date: 20080421
  Transmission Date: 20081010
  Serious: Yes (Other)
  Sender: FDA-Public Use
  Company Number: ES-AVENTIS-200811783EU

PATIENT
  Age: 70 Year
  Sex: Female

DRUGS (6)
  1. SEGURIL                            /00032601/ [Suspect]
     Indication: HEPATIC CIRRHOSIS
     Route: 048
     Dates: start: 20080222
  2. ALDACTONE [Suspect]
     Indication: HEPATIC CIRRHOSIS
     Route: 048
     Dates: start: 20080222
  3. SANDIMMUNE [Concomitant]
     Indication: LIVER TRANSPLANT
     Dosage: DOSE: 75 DF
     Route: 048
     Dates: start: 20080222
  4. NOVORAPID FLEXPEN [Concomitant]
     Indication: DIABETES MELLITUS
     Route: 058
  5. LEVEMIR [Concomitant]
     Indication: DIABETES MELLITUS
     Dosage: DOSE: 45 DF
  6. SOLGOL [Concomitant]
     Indication: HEPATIC CIRRHOSIS
     Route: 048
     Dates: start: 20080222

REACTIONS (2)
  - DRUG INTERACTION [None]
  - HEPATIC ENCEPHALOPATHY [None]
